FAERS Safety Report 4794266-6 (Version None)
Quarter: 2005Q4

REPORT INFORMATION
  Report Type: 
  Country: None (occurrence: None)
  Receive Date: 20051007
  Receipt Date: 20051007
  Transmission Date: 20060501
  Serious: No
  Sender: FDA-Public Use
  Company Number: None

PATIENT

DRUGS (1)
  1. PENICILLIN [Suspect]

REACTIONS (2)
  - INJECTION SITE PAIN [None]
  - INJECTION SITE RASH [None]
